FAERS Safety Report 7479609-7 (Version None)
Quarter: 2011Q2

REPORT INFORMATION
  Report Type: 
  Country: None (occurrence: None)
  Receive Date: 20110513
  Receipt Date: 20101220
  Transmission Date: 20111010
  Serious: Yes (Hospitalization, Other)
  Sender: FDA-Public Use
  Company Number: US-BAYER-201012378NA

PATIENT
  Age: 33 Year
  Sex: Female
  Weight: 90.909 kg

DRUGS (3)
  1. PERCOCET [Concomitant]
  2. YASMIN [Suspect]
     Indication: ORAL CONTRACEPTION
     Dosage: UNK
     Route: 048
     Dates: start: 20050612, end: 20060619
  3. MOTRIN [Concomitant]
     Dosage: UNK
     Dates: start: 20060619

REACTIONS (4)
  - PULMONARY EMBOLISM [None]
  - DYSPNOEA [None]
  - CHEST PAIN [None]
  - PAIN [None]
